FAERS Safety Report 8824064 (Version 1)
Quarter: 2012Q4

REPORT INFORMATION
  Report Type: 
  Country: US (occurrence: US)
  Receive Date: 20121003
  Receipt Date: 20121003
  Transmission Date: 20130627
  Serious: Yes (Hospitalization)
  Sender: FDA-Public Use
  Company Number: US-UCBSA-067997

PATIENT
  Age: 36 Year
  Sex: Female
  Weight: 69.5 kg

DRUGS (5)
  1. CIMZIA [Suspect]
     Indication: CROHN^S DISEASE
     Route: 058
     Dates: start: 20120501
  2. CIPRO [Concomitant]
     Indication: CROHN^S DISEASE
     Dates: start: 20120512, end: 20120522
  3. FLAGYL [Concomitant]
     Indication: CROHN^S DISEASE
     Dates: start: 20120512, end: 20120522
  4. PREDNISONE [Concomitant]
     Indication: CROHN^S DISEASE
     Dates: start: 20120512
  5. AZATHIOPRINE [Concomitant]
     Indication: CROHN^S DISEASE
     Dates: start: 2007

REACTIONS (1)
  - Pyoderma [Unknown]
